FAERS Safety Report 5333653-4 (Version None)
Quarter: 2007Q2

REPORT INFORMATION
  Report Type: 
  Country: None (occurrence: None)
  Receive Date: 20070524
  Receipt Date: 20070521
  Transmission Date: 20071010
  Serious: Yes (Hospitalization, Other)
  Sender: FDA-Public Use
  Company Number: A0600107A

PATIENT
  Age: 62 Year
  Sex: Male

DRUGS (10)
  1. WELLBUTRIN XL [Suspect]
     Indication: DEPRESSION
     Dosage: 150MG PER DAY
     Route: 048
     Dates: start: 20040601, end: 20040801
  2. ADVAIR DISKUS 100/50 [Suspect]
     Indication: ASTHMA
     Dosage: 1PUFF TWICE PER DAY
     Route: 055
  3. CYMBALTA [Concomitant]
  4. ACIPHEX [Concomitant]
  5. METOPROLOL SUCCINATE [Concomitant]
  6. ZYRTEC [Concomitant]
  7. SINGULAIR [Concomitant]
  8. SPIRIVA [Concomitant]
  9. ASPIRIN [Concomitant]
  10. VITAMIN CAP [Concomitant]

REACTIONS (6)
  - DISINHIBITION [None]
  - DIZZINESS [None]
  - MANIA [None]
  - MOOD ALTERED [None]
  - OSTEOPOROSIS [None]
  - PERSONALITY CHANGE [None]
